FAERS Safety Report 23570836 (Version 3)
Quarter: 2025Q4

REPORT INFORMATION
  Report Type: Spontaneous
  Country: EU (occurrence: EU)
  Receive Date: 20240227
  Receipt Date: 20251105
  Transmission Date: 20260117
  Serious: Yes (Hospitalization, Other)
  Sender: NOVARTIS
  Company Number: EU-002147023-NVSC2023SK053206

PATIENT
  Age: 3 Year
  Sex: Female

DRUGS (9)
  1. ELTROMBOPAG OLAMINE [Suspect]
     Active Substance: ELTROMBOPAG OLAMINE
     Indication: Immune thrombocytopenia
     Dosage: UNK
     Route: 065
     Dates: start: 20211106
  2. ELTROMBOPAG OLAMINE [Suspect]
     Active Substance: ELTROMBOPAG OLAMINE
     Indication: Pancytopenia
     Dosage: 75 MG (1X75MG)
     Route: 065
     Dates: start: 20211210, end: 20220117
  3. RITUXIMAB [Suspect]
     Active Substance: RITUXIMAB
     Indication: Pancytopenia
     Dosage: 375 MG/M2
     Route: 042
     Dates: start: 20220117
  4. RITUXIMAB [Suspect]
     Active Substance: RITUXIMAB
     Indication: Cytopenia
     Dosage: 375 MG/M2
     Route: 042
     Dates: start: 20220124
  5. RITUXIMAB [Suspect]
     Active Substance: RITUXIMAB
     Indication: Kabuki make-up syndrome
     Dosage: 375 MG/M2
     Route: 042
     Dates: start: 20220204
  6. RITUXIMAB [Suspect]
     Active Substance: RITUXIMAB
     Dosage: 375 MG/M2
     Route: 042
     Dates: start: 20220214
  7. RITUXIMAB [Suspect]
     Active Substance: RITUXIMAB
     Dosage: 375 MG/M2
     Route: 065
  8. SOLU-MEDROL [Suspect]
     Active Substance: METHYLPREDNISOLONE SODIUM SUCCINATE
     Indication: Cytopenia
     Dosage: 10 MG/KG (5-10 MG/KG)
     Route: 065
  9. SOLU-MEDROL [Suspect]
     Active Substance: METHYLPREDNISOLONE SODIUM SUCCINATE
     Indication: Kabuki make-up syndrome

REACTIONS (10)
  - Respiratory tract infection [Unknown]
  - Ear infection [Unknown]
  - Cushingoid [Unknown]
  - Hypertension [Unknown]
  - Treatment failure [Unknown]
  - Product use issue [Unknown]
  - Therapeutic product effect incomplete [Unknown]
  - Drug ineffective for unapproved indication [Unknown]
  - Product use in unapproved indication [Unknown]
  - Intentional product use issue [Unknown]
